FAERS Safety Report 24312865 (Version 2)
Quarter: 2024Q4

REPORT INFORMATION
  Report Type: Spontaneous
  Country: US (occurrence: US)
  Receive Date: 20240912
  Receipt Date: 20241016
  Transmission Date: 20250115
  Serious: No
  Sender: PFIZER
  Company Number: US-PFIZER INC-PV202400119583

PATIENT
  Age: 15 Year
  Sex: Male
  Weight: 91.6 kg

DRUGS (3)
  1. NGENLA [Suspect]
     Active Substance: SOMATROGON-GHLA
     Indication: Hypopituitarism
     Dosage: 50 MG, WEEKLY
  2. GENOTROPIN [Suspect]
     Active Substance: SOMATROPIN
     Indication: Hypopituitarism
  3. SOLU-CORTEF [Concomitant]
     Active Substance: HYDROCORTISONE SODIUM SUCCINATE

REACTIONS (1)
  - Heat exhaustion [Unknown]
